FAERS Safety Report 15884221 (Version 1)
Quarter: 2019Q1

REPORT INFORMATION
  Report Type: Spontaneous
  Country: US (occurrence: US)
  Receive Date: 20190129
  Receipt Date: 20190129
  Transmission Date: 20190417
  Serious: Yes (Death, Hospitalization)
  Sender: FDA-Public Use
  Company Number: US-ALEMBIC PHARMACUETICALS LIMITED-2019SCAL000037

PATIENT

DRUGS (1)
  1. DOXYCYCLINE. [Suspect]
     Active Substance: DOXYCYCLINE
     Indication: CELLULITIS
     Dosage: UNK

REACTIONS (12)
  - Hypotension [Fatal]
  - Rash [Fatal]
  - Toxic epidermal necrolysis [Fatal]
  - Pain [Fatal]
  - Skin exfoliation [Fatal]
  - Ventricular tachycardia [Fatal]
  - Tachycardia [Fatal]
  - Cardiac arrest [Fatal]
  - Pulse absent [Fatal]
  - Skin wound [Unknown]
  - Fatigue [Fatal]
  - Mucosal ulceration [Fatal]
